FAERS Safety Report 14803471 (Version 2)
Quarter: 2018Q2

REPORT INFORMATION
  Report Type: Spontaneous
  Country: JP (occurrence: JP)
  Receive Date: 20180425
  Receipt Date: 20180517
  Transmission Date: 20180711
  Serious: Yes (Life-Threatening, Other)
  Sender: FDA-Public Use
  Company Number: JP-TAKEDA-2018TJP010877AA

PATIENT
  Age: 87 Year
  Sex: Female
  Weight: 44 kg

DRUGS (9)
  1. QUETIAPINE                         /01270902/ [Concomitant]
     Active Substance: QUETIAPINE FUMARATE
     Dosage: 75 MG, QD
     Route: 048
     Dates: start: 20180206
  2. BELSOMRA [Concomitant]
     Active Substance: SUVOREXANT
     Indication: NEUROPSYCHIATRIC SYMPTOMS
     Dosage: 15 MG, QD
     Route: 048
     Dates: start: 20180131
  3. ROZEREM [Suspect]
     Active Substance: RAMELTEON
     Dosage: 8 MG, QD
     Route: 048
     Dates: start: 20180416, end: 20180416
  4. ROZEREM [Suspect]
     Active Substance: RAMELTEON
     Indication: INSOMNIA
     Dosage: 4 MG, UNK
     Route: 048
  5. MEMARY [Concomitant]
     Active Substance: MEMANTINE HYDROCHLORIDE
     Indication: NEUROPSYCHIATRIC SYMPTOMS
     Dosage: 20 MG, QD
     Route: 048
     Dates: start: 20180206
  6. RIVOTRIL [Concomitant]
     Active Substance: CLONAZEPAM
     Indication: NEUROPSYCHIATRIC SYMPTOMS
     Dosage: 1 MG, QD
     Route: 048
     Dates: start: 20180130
  7. QUETIAPINE                         /01270902/ [Concomitant]
     Active Substance: QUETIAPINE FUMARATE
     Indication: NEUROPSYCHIATRIC SYMPTOMS
     Dosage: 25 MG, BID
     Route: 048
     Dates: start: 20180118
  8. MAGNESIUM OXIDE. [Concomitant]
     Active Substance: MAGNESIUM OXIDE
     Indication: CONSTIPATION
     Dosage: 0.5 G, BID
     Route: 048
     Dates: start: 20180116
  9. VALPROATE SODIUM. [Concomitant]
     Active Substance: VALPROATE SODIUM
     Indication: NEUROPSYCHIATRIC SYMPTOMS
     Dosage: 100 MG, TID
     Route: 048
     Dates: start: 20180110

REACTIONS (5)
  - Blood pressure decreased [Recovered/Resolved]
  - Drug prescribing error [Unknown]
  - Wrong technique in product usage process [Unknown]
  - Altered state of consciousness [Recovered/Resolved]
  - Drug prescribing error [Unknown]

NARRATIVE: CASE EVENT DATE: 20180416
